FAERS Safety Report 8988691 (Version 3)
Quarter: 2013Q1

REPORT INFORMATION
  Report Type: Spontaneous
  Country: JP (occurrence: JP)
  Receive Date: 20121228
  Receipt Date: 20130117
  Transmission Date: 20140127
  Serious: Yes (Other)
  Sender: FDA-Public Use
  Company Number: JP-BRISTOL-MYERS SQUIBB COMPANY-17239609

PATIENT
  Age: 0 Year
  Sex: Male
  Weight: 3.02 kg

DRUGS (1)
  1. ABILIFY TABS [Suspect]
     Route: 064
     Dates: end: 201212

REACTIONS (1)
  - Foetal distress syndrome [Unknown]
